FAERS Safety Report 8908939 (Version 1)
Quarter: 2012Q4

REPORT INFORMATION
  Report Type: 
  Country: US (occurrence: US)
  Receive Date: 20121114
  Receipt Date: 20121114
  Transmission Date: 20130627
  Serious: No
  Sender: FDA-Public Use
  Company Number: US-MYLANLABS-2012S1005681

PATIENT
  Age: 65 Year
  Sex: Female
  Weight: 114.31 kg

DRUGS (10)
  1. TRIAMTERENE [Suspect]
     Indication: OEDEMA
     Dates: start: 20120109
  2. TRIAMTERENE [Suspect]
     Indication: HYPERTENSION
     Dates: start: 20120109
  3. LISINOPRIL [Suspect]
     Indication: HYPERTENSION
     Route: 048
     Dates: start: 2001
  4. IBUPROFEN [Concomitant]
     Indication: ARTHRALGIA
     Route: 048
  5. VITAMIN D [Concomitant]
     Indication: VITAMIN D DECREASED
     Route: 048
     Dates: start: 2003
  6. ASA [Concomitant]
     Route: 048
     Dates: start: 2006
  7. FOLTX [Concomitant]
     Indication: MINERAL SUPPLEMENTATION
     Route: 048
     Dates: start: 2001
  8. EFFEXOR [Concomitant]
     Indication: DEPRESSION
     Route: 048
     Dates: start: 2001
  9. LUMIGAN [Concomitant]
     Indication: GLAUCOMA
     Dates: start: 2001
  10. BETIMOL [Concomitant]
     Indication: GLAUCOMA
     Dates: start: 2001

REACTIONS (4)
  - Blood pressure increased [Unknown]
  - Fatigue [Unknown]
  - Dyspnoea [Unknown]
  - Oedema [Unknown]
